FAERS Safety Report 9796014 (Version 1)
Quarter: 2014Q1

REPORT INFORMATION
  Report Type: Spontaneous
  Country: FR (occurrence: FR)
  Receive Date: 20140103
  Receipt Date: 20140103
  Transmission Date: 20141002
  Serious: Yes (Other)
  Sender: FDA-Public Use
  Company Number: FR-TEVA-452474ISR

PATIENT
  Age: 70 Year
  Sex: Male

DRUGS (2)
  1. FENOFIBRATE RATIOPHARM 200MG [Suspect]
     Dosage: 200 MILLIGRAM DAILY;
     Route: 048
     Dates: start: 201308, end: 201308
  2. PREVISCAN [Suspect]
     Dosage: 20 MILLIGRAM DAILY; FOR 15 YEARS
     Route: 048

REACTIONS (1)
  - International normalised ratio increased [Recovered/Resolved]
